FAERS Safety Report 10142393 (Version 1)
Quarter: 2014Q2

REPORT INFORMATION
  Report Type: Spontaneous
  Country: NL (occurrence: NL)
  Receive Date: 20140430
  Receipt Date: 20140430
  Transmission Date: 20141212
  Serious: Yes (Hospitalization)
  Sender: FDA-Public Use
  Company Number: NL-AMGEN INC.-NLDSP2011071005

PATIENT
  Age: 77 Year
  Sex: Female

DRUGS (1)
  1. NPLATE [Suspect]
     Indication: IMMUNE THROMBOCYTOPENIC PURPURA
     Dosage: 6.7 MUG/KG, QWK
     Route: 058
     Dates: start: 20110426, end: 20131219

REACTIONS (1)
  - Hospitalisation [Recovered/Resolved]
